FAERS Safety Report 6717760-7 (Version None)
Quarter: 2010Q2

REPORT INFORMATION
  Report Type: 
  Country: None (occurrence: None)
  Receive Date: 20100507
  Receipt Date: 20100507
  Transmission Date: 20101027
  Serious: Yes (Hospitalization)
  Sender: FDA-Public Use
  Company Number: None

PATIENT
  Sex: Female
  Weight: 73.2 kg

DRUGS (2)
  1. OXALIPLATIN [Suspect]
  2. FLUOROURACIL [Suspect]

REACTIONS (1)
  - SMALL INTESTINAL OBSTRUCTION [None]
